FAERS Safety Report 11422155 (Version 1)
Quarter: 2015Q3

REPORT INFORMATION
  Report Type: Spontaneous
  Country: US (occurrence: US)
  Receive Date: 20150827
  Receipt Date: 20150827
  Transmission Date: 20151125
  Serious: Yes (Other)
  Sender: FDA-Public Use
  Company Number: US-ROCHE-1590127

PATIENT
  Age: 60 Year
  Sex: Male

DRUGS (2)
  1. AVASTIN [Suspect]
     Active Substance: BEVACIZUMAB
     Indication: DIABETIC RETINOPATHY
     Dosage: BOTH EYES
     Route: 065
     Dates: start: 20150528
  2. AVASTIN [Suspect]
     Active Substance: BEVACIZUMAB
     Indication: MACULAR OEDEMA

REACTIONS (5)
  - Drug ineffective [Unknown]
  - Deafness [Unknown]
  - No adverse event [Unknown]
  - Skin discolouration [Not Recovered/Not Resolved]
  - Type 1 diabetes mellitus [Unknown]

NARRATIVE: CASE EVENT DATE: 20150604
